FAERS Safety Report 15412506 (Version 2)
Quarter: 2018Q4

REPORT INFORMATION
  Report Type: Spontaneous
  Country: US (occurrence: US)
  Receive Date: 20180921
  Receipt Date: 20181203
  Transmission Date: 20190204
  Serious: No
  Sender: FDA-Public Use
  Company Number: US-SA-2018SA260678

PATIENT
  Age: 64 Year
  Sex: Male
  Weight: 68 kg

DRUGS (1)
  1. ALLEGRA [Suspect]
     Active Substance: FEXOFENADINE HYDROCHLORIDE
     Indication: URTICARIA
     Dosage: 60 MG, BID
     Dates: start: 20180907, end: 20180912

REACTIONS (2)
  - Product dose omission [Unknown]
  - Headache [Unknown]

NARRATIVE: CASE EVENT DATE: 20180910
